FAERS Safety Report 24024218 (Version 2)
Quarter: 2024Q3

REPORT INFORMATION
  Report Type: Report from Study
  Country: CN (occurrence: CN)
  Receive Date: 20240627
  Receipt Date: 20240710
  Transmission Date: 20241017
  Serious: No
  Sender: ROCHE
  Company Number: CN-ROCHE-3522364

PATIENT
  Age: 81 Year
  Sex: Male
  Weight: 60.0 kg

DRUGS (11)
  1. ALECTINIB [Suspect]
     Active Substance: ALECTINIB
     Indication: Non-small cell lung cancer
     Route: 048
     Dates: start: 20210907
  2. ALECTINIB [Suspect]
     Active Substance: ALECTINIB
     Route: 065
     Dates: start: 202105
  3. SPIRONOLACTONE [Concomitant]
     Active Substance: SPIRONOLACTONE
     Indication: Hypertension
     Route: 048
     Dates: start: 20231115
  4. FELODIPINE [Concomitant]
     Active Substance: FELODIPINE
     Indication: Hypertension
     Route: 048
     Dates: start: 20231115
  5. CLOPIDOGREL [Concomitant]
     Active Substance: CLOPIDOGREL BISULFATE
     Indication: Atrial fibrillation
     Route: 048
     Dates: start: 20231115
  6. RABEPRAZOLE SODIUM [Concomitant]
     Active Substance: RABEPRAZOLE SODIUM
     Route: 048
     Dates: start: 20231115
  7. POTASSIUM CHLORIDE [Concomitant]
     Active Substance: POTASSIUM CHLORIDE
     Indication: Hypokalaemia
     Route: 048
     Dates: start: 20231115
  8. FUROSEMIDE [Concomitant]
     Active Substance: FUROSEMIDE
     Indication: Hypokalaemia
     Route: 048
     Dates: start: 20231115
  9. RIVAROXABAN [Concomitant]
     Active Substance: RIVAROXABAN
     Indication: Cardiac failure
     Route: 048
     Dates: start: 20231115
  10. AMIODARONE [Concomitant]
     Active Substance: AMIODARONE
     Indication: Arrhythmia
     Route: 048
     Dates: start: 20231115
  11. ATORVASTATIN CALCIUM [Concomitant]
     Active Substance: ATORVASTATIN CALCIUM
     Indication: Coronary artery disease
     Route: 048
     Dates: start: 20231115

REACTIONS (1)
  - Blood lactate dehydrogenase increased [Not Recovered/Not Resolved]

NARRATIVE: CASE EVENT DATE: 20231130
